FAERS Safety Report 5744206-8 (Version None)
Quarter: 2008Q2

REPORT INFORMATION
  Report Type: 
  Country: None (occurrence: None)
  Receive Date: 20080515
  Receipt Date: 20080515
  Transmission Date: 20081010
  Serious: Yes (Hospitalization)
  Sender: FDA-Public Use
  Company Number: None

PATIENT
  Sex: Male
  Weight: 101.1521 kg

DRUGS (12)
  1. DASATINIB  50MG  BMS [Suspect]
     Indication: NEOPLASM MALIGNANT
     Dosage: 150MG DAILY PO
     Route: 048
     Dates: start: 20080409, end: 20080424
  2. CETUXIMAB  2MG/1CC  BMS [Suspect]
     Indication: NEOPLASM MALIGNANT
     Dosage: 250MG/M2 WEEKLY IV DRIP
     Route: 041
     Dates: start: 20080410, end: 20080424
  3. THYROID TAB [Concomitant]
  4. CENTRUM [Concomitant]
  5. ALLIEVE [Concomitant]
  6. NORVASC [Concomitant]
  7. VITAMIN D [Concomitant]
  8. ASPIRIN [Concomitant]
  9. DIOVAN [Concomitant]
  10. GLUCOSAMINE [Concomitant]
  11. COLACE [Concomitant]
  12. ADVAIR DISKUS 100/50 [Concomitant]

REACTIONS (4)
  - DISEASE PROGRESSION [None]
  - HYPOXIA [None]
  - PLEURAL EFFUSION [None]
  - SMALL INTESTINAL OBSTRUCTION [None]
